FAERS Safety Report 5150254-1 (Version None)
Quarter: 2006Q4

REPORT INFORMATION
  Report Type: 
  Country: None (occurrence: None)
  Receive Date: 20061108
  Receipt Date: 20061026
  Transmission Date: 20070319
  Serious: Yes (Other)
  Sender: FDA-Public Use
  Company Number: 2006133269

PATIENT
  Age: 62 Year
  Sex: Female
  Weight: 97.0698 kg

DRUGS (5)
  1. SINEQUAN [Suspect]
     Indication: NERVOUSNESS
     Dosage: 25 MG (25 MG, 2 IN 1 D)
     Dates: start: 19870101
  2. LASIX [Concomitant]
  3. ALL OTHER THERAPEUTIC PRODUCTS (ALL OTHER THERAPEUTIC PRODUCTS) [Concomitant]
  4. LISINOPRIL [Concomitant]
  5. ATENOLOL [Concomitant]

REACTIONS (6)
  - ARTHRITIS [None]
  - CARPAL TUNNEL SYNDROME [None]
  - HEADACHE [None]
  - LIVER FUNCTION TEST ABNORMAL [None]
  - MYALGIA [None]
  - NEUROPATHY [None]
